FAERS Safety Report 7499502-3 (Version None)
Quarter: 2011Q2

REPORT INFORMATION
  Report Type: 
  Country: None (occurrence: None)
  Receive Date: 20110524
  Receipt Date: 20110512
  Transmission Date: 20111010
  Serious: Yes (Other)
  Sender: FDA-Public Use
  Company Number: PHHY2011US16494

PATIENT
  Sex: Female
  Weight: 127 kg

DRUGS (10)
  1. GILENYA [Suspect]
     Indication: MULTIPLE SCLEROSIS
     Dosage: 0.5 MG, QD
     Route: 048
     Dates: start: 20101201
  2. PERCOCET [Concomitant]
     Dosage: UNK UKN, QID
     Route: 048
  3. KADIAN [Concomitant]
     Dosage: 10 MG, DAILY
     Route: 048
  4. LYRICA [Suspect]
     Dosage: 50 MG, BID
  5. SOLU-MEDROL [Interacting]
     Indication: MULTIPLE SCLEROSIS
     Dosage: 500 MG, EVERY TWO WEEKS FOR THREE WEEKS
     Route: 042
     Dates: start: 20110204
  6. TIZANIDINE HCL [Concomitant]
     Dosage: UNK UKN, UNK
  7. STEROIDS NOS [Concomitant]
     Route: 042
  8. SANCTURA [Suspect]
     Dosage: 60 MG, DAILY
     Route: 048
  9. AMPYRA [Interacting]
     Dosage: 10 MG, BID
     Route: 048
     Dates: start: 20100429
  10. XANAX [Concomitant]
     Dosage: 0.6 MG, PRN
     Route: 048

REACTIONS (3)
  - WHITE BLOOD CELL COUNT DECREASED [None]
  - MUSCLE SPASMS [None]
  - DRUG INTERACTION [None]
